FAERS Safety Report 9471059 (Version 1)
Quarter: 2013Q3

REPORT INFORMATION
  Report Type: Spontaneous
  Country: IE (occurrence: None)
  Receive Date: 20130816
  Receipt Date: 20130816
  Transmission Date: 20140515
  Serious: Yes (Other)
  Sender: FDA-Public Use
  Company Number: IPC201308-000314

PATIENT
  Age: 82 Year
  Sex: Female

DRUGS (1)
  1. METFORMIN HYDROCHLORIDE [Suspect]
     Indication: TYPE 2 DIABETES MELLITUS

REACTIONS (7)
  - Vitamin B12 deficiency [None]
  - Pancytopenia [None]
  - Anaemia megaloblastic [None]
  - Blood bilirubin increased [None]
  - Confusional state [None]
  - Gait disturbance [None]
  - Blood lactate dehydrogenase increased [None]
